FAERS Safety Report 10052020 (Version 3)
Quarter: 2014Q2

REPORT INFORMATION
  Report Type: Report from Study
  Country: DE (occurrence: DE)
  Receive Date: 20140402
  Receipt Date: 20140507
  Transmission Date: 20141212
  Serious: Yes (Hospitalization, Other)
  Sender: FDA-Public Use
  Company Number: DE-ROCHE-1375569

PATIENT
  Age: 61 Year
  Sex: Female

DRUGS (6)
  1. RANIBIZUMAB [Suspect]
     Indication: AGE-RELATED MACULAR DEGENERATION
     Route: 050
     Dates: start: 20121218
  2. RANIBIZUMAB [Suspect]
     Route: 050
     Dates: start: 20140313
  3. EUTHYROX [Concomitant]
     Indication: HYPOTHYROIDISM
  4. ENALAPRIL [Concomitant]
     Indication: HYPERTENSION
  5. ALLOPURINOL [Concomitant]
     Indication: GOUT
  6. VOLTAREN OPHTHA [Concomitant]
     Route: 065
     Dates: start: 20120924

REACTIONS (5)
  - Toxic anterior segment syndrome [Recovering/Resolving]
  - Non-infectious endophthalmitis [Recovering/Resolving]
  - Anterior chamber cell [Unknown]
  - Vitritis [Unknown]
  - Visual acuity reduced [Unknown]
